FAERS Safety Report 5028805-7 (Version None)
Quarter: 2006Q2

REPORT INFORMATION
  Report Type: 
  Country: None (occurrence: None)
  Receive Date: 20060619
  Receipt Date: 20060614
  Transmission Date: 20061013
  Serious: Yes (Hospitalization)
  Sender: FDA-Public Use
  Company Number: PHRM2006FR01797

PATIENT
  Sex: Male

DRUGS (2)
  1. NISIS [Suspect]
     Indication: HYPERTENSION
     Route: 048
  2. FERVEX [Concomitant]
     Route: 048

REACTIONS (1)
  - HAEMOLYTIC ANAEMIA [None]
